FAERS Safety Report 20411218 (Version 2)
Quarter: 2022Q1

REPORT INFORMATION
  Report Type: Spontaneous
  Country: US (occurrence: None)
  Receive Date: 20220201
  Receipt Date: 20220315
  Transmission Date: 20220424
  Serious: Yes (Other)
  Sender: FDA-Public Use
  Company Number: 2022A045387

PATIENT
  Age: 24277 Day
  Sex: Female
  Weight: 77.6 kg

DRUGS (1)
  1. BYDUREON BCISE [Suspect]
     Active Substance: EXENATIDE
     Indication: Type 2 diabetes mellitus
     Dosage: 2MG/ML ONCE A WEEK
     Route: 058

REACTIONS (12)
  - Breast cancer [Unknown]
  - Blood glucose increased [Unknown]
  - Nasopharyngitis [Unknown]
  - Sinus disorder [Unknown]
  - Fear [Unknown]
  - Injection site haemorrhage [Unknown]
  - Needle issue [Unknown]
  - Product dose omission issue [Unknown]
  - Device issue [Unknown]
  - Device leakage [Unknown]
  - Inability to afford medication [Unknown]
  - Intentional product misuse [Unknown]

NARRATIVE: CASE EVENT DATE: 20220124
